FAERS Safety Report 5128940-9 (Version None)
Quarter: 2006Q4

REPORT INFORMATION
  Report Type: 
  Country: None (occurrence: None)
  Receive Date: 20061017
  Receipt Date: 20061011
  Transmission Date: 20070319
  Serious: Yes (Hospitalization)
  Sender: FDA-Public Use
  Company Number: FR-BRISTOL-MYERS SQUIBB COMPANY-13539432

PATIENT
  Age: 60 Year
  Sex: Male
  Weight: 70 kg

DRUGS (9)
  1. VIDEX [Suspect]
     Indication: HIV INFECTION
     Route: 048
  2. SUPRADYN [Suspect]
     Indication: HYPERLIPIDAEMIA
     Route: 048
  3. MAXEPA [Suspect]
     Indication: HYPERLIPIDAEMIA
     Route: 048
  4. TELZIR [Concomitant]
  5. NORVIR [Concomitant]
  6. EPIVIR [Concomitant]
  7. ZELITREX [Concomitant]
  8. IMODIUM [Concomitant]
  9. XANAX [Concomitant]

REACTIONS (1)
  - PAPILLOEDEMA [None]
